FAERS Safety Report 5061996-0 (Version None)
Quarter: 2006Q3

REPORT INFORMATION
  Report Type: 
  Country: None (occurrence: None)
  Receive Date: 20060703
  Receipt Date: 20051025
  Transmission Date: 20061208
  Serious: No
  Sender: FDA-Public Use
  Company Number: 2005S1010540

PATIENT
  Age: 40 Year
  Sex: Male

DRUGS (3)
  1. CLOZAPINE [Suspect]
     Dosage: 300 MG; HS; PO; SEE IMAGE
     Route: 048
     Dates: start: 20050401, end: 20051001
  2. CLOZAPINE [Suspect]
     Dosage: 300 MG; HS; PO; SEE IMAGE
     Route: 048
     Dates: start: 20051001
  3. HALOPERIDOL [Concomitant]

REACTIONS (1)
  - GRANULOCYTOPENIA [None]
